FAERS Safety Report 11734167 (Version 1)
Quarter: 2015Q4

REPORT INFORMATION
  Report Type: Report from Study
  Country: CZ (occurrence: CZ)
  Receive Date: 20151113
  Receipt Date: 20151113
  Transmission Date: 20160304
  Serious: Yes (Hospitalization)
  Sender: FDA-Public Use
  Company Number: CZ-JNJFOC-20151004692

PATIENT
  Age: 73 Year
  Sex: Female
  Weight: 59 kg

DRUGS (10)
  1. LETROX [Concomitant]
     Route: 065
  2. HYDROCORTISONE. [Concomitant]
     Active Substance: HYDROCORTISONE
     Indication: PREMEDICATION
     Route: 042
  3. NALTREXONE HCL [Concomitant]
     Active Substance: NALTREXONE HYDROCHLORIDE
     Route: 065
  4. MEDROL [Concomitant]
     Active Substance: METHYLPREDNISOLONE
     Route: 065
  5. BONVIVA [Concomitant]
     Active Substance: IBANDRONATE SODIUM
     Route: 065
  6. ACIDUM FOLICUM [Concomitant]
     Active Substance: FOLIC ACID
     Route: 065
  7. EGILOK [Concomitant]
     Active Substance: METOPROLOL TARTRATE
     Route: 065
  8. REMICADE [Suspect]
     Active Substance: INFLIXIMAB
     Indication: RHEUMATOID ARTHRITIS
     Dosage: STRENTH WAS 100MG AND TOTAL DAILY DOSE 200MG
     Route: 042
     Dates: start: 20150724
  9. APO OME [Concomitant]
     Route: 065
  10. REMICADE [Suspect]
     Active Substance: INFLIXIMAB
     Indication: RHEUMATOID ARTHRITIS
     Dosage: STRENGTH 100 AND TOTAL DAILY DOSE OF 200 MG. DISCONTINUED FOR 4 WEEKS
     Route: 042
     Dates: start: 20090717

REACTIONS (3)
  - Subclavian artery occlusion [Not Recovered/Not Resolved]
  - Post procedural complication [Recovering/Resolving]
  - Embolism venous [Recovering/Resolving]

NARRATIVE: CASE EVENT DATE: 201506
